FAERS Safety Report 9968758 (Version 1)
Quarter: 2014Q1

REPORT INFORMATION
  Report Type: Report from Study
  Country: US (occurrence: US)
  Receive Date: 20140306
  Receipt Date: 20140306
  Transmission Date: 20141002
  Serious: No
  Sender: FDA-Public Use
  Company Number: US-ABBVIE-13P-163-1142171-00

PATIENT
  Age: 56 Year
  Sex: Female

DRUGS (4)
  1. HUMIRA [Suspect]
     Indication: CROHN^S DISEASE
     Dates: start: 20130607
  2. HYDROCODONE [Concomitant]
     Indication: INTERVERTEBRAL DISC PROTRUSION
  3. HYDROCODONE [Concomitant]
     Indication: MIGRAINE
  4. VALIUM [Concomitant]
     Indication: NERVOUSNESS

REACTIONS (5)
  - Wrong technique in drug usage process [Recovered/Resolved]
  - Incorrect route of drug administration [Recovered/Resolved]
  - Diarrhoea [Not Recovered/Not Resolved]
  - Nausea [Not Recovered/Not Resolved]
  - Drug dose omission [Recovered/Resolved]
